FAERS Safety Report 7179636-3 (Version None)
Quarter: 2010Q4

REPORT INFORMATION
  Report Type: 
  Country: None (occurrence: None)
  Receive Date: 20101221
  Receipt Date: 20100531
  Transmission Date: 20110411
  Serious: Yes (Hospitalization)
  Sender: FDA-Public Use
  Company Number: AU-ROCHE-706571

PATIENT
  Sex: Female
  Weight: 69.6 kg

DRUGS (5)
  1. KYTRIL [Suspect]
     Route: 042
     Dates: start: 20080317
  2. METOCLOPRAMIDE [Suspect]
     Dosage: DRUG:METOCLOPRAMIDE HYDROCHLORIDE
     Route: 042
     Dates: start: 20080317, end: 20080318
  3. MORPHINE [Suspect]
     Dosage: DRUG:MORPHINE NOS
     Route: 042
     Dates: start: 20080317
  4. DALTEPARIN SODIUM [Concomitant]
     Dosage: DOSE:5000 INT
     Route: 058
     Dates: start: 20100311
  5. OXYCODONE HYDROCHLORIDE [Concomitant]
     Route: 048
     Dates: start: 20080314

REACTIONS (4)
  - DIZZINESS [None]
  - HYPERHIDROSIS [None]
  - NAUSEA [None]
  - VOMITING [None]
